FAERS Safety Report 12766171 (Version 1)
Quarter: 2016Q3

REPORT INFORMATION
  Report Type: Spontaneous
  Country: US (occurrence: US)
  Receive Date: 20160920
  Receipt Date: 20160920
  Transmission Date: 20161109
  Serious: No
  Sender: FDA-Public Use
  Company Number: None

PATIENT
  Sex: Female
  Weight: 57.6 kg

DRUGS (6)
  1. CLARITIN [Concomitant]
     Active Substance: LORATADINE
  2. ALBUTEROL. [Concomitant]
     Active Substance: ALBUTEROL
  3. MOXIFLOXACIN HCL 400 MG [Suspect]
     Active Substance: MOXIFLOXACIN HYDROCHLORIDE
     Indication: INFECTION
     Route: 048
  4. LIPITOR [Concomitant]
     Active Substance: ATORVASTATIN CALCIUM
  5. ADVAIR HFA [Concomitant]
     Active Substance: FLUTICASONE PROPIONATE\SALMETEROL XINAFOATE
  6. RESPICLICK [Concomitant]

REACTIONS (5)
  - Muscular weakness [None]
  - Paraesthesia [None]
  - Arthralgia [None]
  - Pain in extremity [None]
  - Dizziness [None]

NARRATIVE: CASE EVENT DATE: 20160920
